FAERS Safety Report 9104232 (Version 1)
Quarter: 2013Q1

REPORT INFORMATION
  Report Type: Spontaneous
  Country: IT (occurrence: IT)
  Receive Date: 20130219
  Receipt Date: 20130219
  Transmission Date: 20140127
  Serious: Yes (Hospitalization)
  Sender: FDA-Public Use
  Company Number: IT-ROCHE-1192105

PATIENT
  Age: 36 Year
  Sex: Female
  Weight: 56 kg

DRUGS (3)
  1. TORADOL [Suspect]
     Indication: BACK PAIN
     Route: 030
     Dates: start: 20121204, end: 20121206
  2. ARCOXIA [Suspect]
     Indication: BACK PAIN
     Route: 048
     Dates: start: 20121207, end: 20121207
  3. CO-EFFERALGAN [Suspect]
     Indication: BACK PAIN
     Route: 048
     Dates: start: 20121207, end: 20121207

REACTIONS (3)
  - Rash erythematous [Recovered/Resolved]
  - Dyspnoea [Recovered/Resolved]
  - Generalised oedema [Recovered/Resolved]
